FAERS Safety Report 15713727 (Version 1)
Quarter: 2018Q4

REPORT INFORMATION
  Report Type: Spontaneous
  Country: US (occurrence: US)
  Receive Date: 20181129
  Receipt Date: 20181129
  Transmission Date: 20190205
  Serious: No
  Sender: FDA-Public Use
  Company Number: None

PATIENT
  Age: 87 Year
  Sex: Female
  Weight: 44.91 kg

DRUGS (2)
  1. CEFDINIR 300MG [Suspect]
     Active Substance: CEFDINIR
     Indication: CYSTITIS
     Route: 048
  2. CEFDINIR 300MG [Suspect]
     Active Substance: CEFDINIR
     Indication: URINARY TRACT INFECTION
     Route: 048

REACTIONS (2)
  - Treatment noncompliance [None]
  - Product use issue [None]

NARRATIVE: CASE EVENT DATE: 20181016
